FAERS Safety Report 6836215-2 (Version None)
Quarter: 2010Q3

REPORT INFORMATION
  Report Type: 
  Country: None (occurrence: None)
  Receive Date: 20100713
  Receipt Date: 20100707
  Transmission Date: 20110219
  Serious: Yes (Other)
  Sender: FDA-Public Use
  Company Number: GB-ASTRAZENECA-2010SE31612

PATIENT
  Age: 57 Year
  Sex: Female

DRUGS (7)
  1. FASLODEX [Suspect]
     Indication: BREAST CANCER
     Route: 030
     Dates: start: 20100511
  2. 5-FLU [Concomitant]
     Dates: end: 20090601
  3. CYCLOPHOSPHAMIDE [Concomitant]
     Dates: end: 20090601
  4. EPIRUBICIN [Concomitant]
     Dates: end: 20090601
  5. LETROZOLE [Concomitant]
  6. TAMOXIFEN [Concomitant]
  7. TOREMIFENE [Concomitant]

REACTIONS (1)
  - CONTUSION [None]
